FAERS Safety Report 22858294 (Version 2)
Quarter: 2023Q4

REPORT INFORMATION
  Report Type: Spontaneous
  Country: AR (occurrence: AR)
  Receive Date: 20230824
  Receipt Date: 20231020
  Transmission Date: 20240110
  Serious: Yes (Other)
  Sender: FDA-Public Use
  Company Number: AR-002147023-NVSC2023AR181961

PATIENT
  Sex: Female

DRUGS (10)
  1. ANAFRANIL [Suspect]
     Active Substance: CLOMIPRAMINE HYDROCHLORIDE
     Indication: Mental disorder
     Dosage: 0.5 DF, QD (STARTED 42 YEARS AGO)
     Route: 048
  2. ANAFRANIL [Suspect]
     Active Substance: CLOMIPRAMINE HYDROCHLORIDE
     Dosage: 75 MG, QD
     Route: 065
  3. ALPRAZOLAM [Concomitant]
     Active Substance: ALPRAZOLAM
     Indication: Product used for unknown indication
     Dosage: UNK
     Route: 065
  4. AUDIPAX [Concomitant]
     Indication: Product used for unknown indication
     Dosage: UNK
     Route: 065
  5. LIPITOR [Concomitant]
     Active Substance: ATORVASTATIN CALCIUM
     Indication: Product used for unknown indication
     Dosage: UNK
     Route: 065
  6. ENALAPRIL MALEATE [Concomitant]
     Active Substance: ENALAPRIL MALEATE
     Indication: Product used for unknown indication
     Dosage: 5 MG
     Route: 065
  7. Nivas [Concomitant]
     Indication: Product used for unknown indication
     Dosage: UNK
     Route: 065
  8. GALANTAMINE HYDROBROMIDE [Concomitant]
     Active Substance: GALANTAMINE HYDROBROMIDE
     Indication: Product used for unknown indication
     Dosage: UNK
     Route: 065
  9. REAGIN [Concomitant]
     Indication: Product used for unknown indication
     Dosage: UNK (250)
     Route: 065
  10. ZYPREXA [Concomitant]
     Active Substance: OLANZAPINE
     Indication: Product used for unknown indication
     Dosage: UNK
     Route: 065

REACTIONS (7)
  - Cerebrovascular accident [Unknown]
  - Drug dependence [Unknown]
  - Hypoacusis [Unknown]
  - Product availability issue [Unknown]
  - Wrong technique in product usage process [Unknown]
  - Dizziness [Unknown]
  - Balance disorder [Unknown]

NARRATIVE: CASE EVENT DATE: 20040101
